FAERS Safety Report 19913871 (Version 2)
Quarter: 2022Q1

REPORT INFORMATION
  Report Type: Spontaneous
  Country: GB (occurrence: GB)
  Receive Date: 20211004
  Receipt Date: 20220225
  Transmission Date: 20220424
  Serious: Yes (Death, Life-Threatening, Hospitalization, Other)
  Sender: FDA-Public Use
  Company Number: None

PATIENT
  Age: 66 Year
  Sex: Female

DRUGS (44)
  1. APIXABAN [Suspect]
     Active Substance: APIXABAN
     Indication: Deep vein thrombosis
     Dosage: 5 MILLIGRAM, BID
     Route: 048
     Dates: start: 20200804, end: 20210528
  2. APIXABAN [Suspect]
     Active Substance: APIXABAN
     Dosage: 5 MILLIGRAM, BID, MORNING/BED
     Dates: start: 20210526, end: 20210527
  3. AMLODIPINE [Concomitant]
     Active Substance: AMLODIPINE BESYLATE
     Dosage: 10 MILLIGRAM, QD, TAKE IN THE MORNING
     Dates: start: 20210527, end: 20210603
  4. BENDROFLUMETHIAZIDE [Concomitant]
     Active Substance: BENDROFLUMETHIAZIDE
     Dosage: 2.5 MILLIGRAM, QD,TAKE IN THE MORNING
     Route: 048
     Dates: start: 20210527, end: 20210603
  5. CYCLIZINE [Concomitant]
     Active Substance: CYCLIZINE
     Dosage: 50 MILLIGRAM, PRN, 1 TDS PRN
  6. CYCLIZINE [Concomitant]
     Active Substance: CYCLIZINE
     Dosage: 50 MILLIGRAM, TID
  7. LEVOTHYROXINE [Concomitant]
     Active Substance: LEVOTHYROXINE
     Dosage: 100 MICROGRAM, AM
  8. LEVOTHYROXINE [Concomitant]
     Active Substance: LEVOTHYROXINE
     Dosage: 200 MICROGRAM, QD,MORNING
     Route: 048
     Dates: start: 20210527, end: 20210618
  9. LEVOTHYROXINE [Concomitant]
     Active Substance: LEVOTHYROXINE
     Dosage: 200 MICROGRAM, QD, MORNING
     Route: 060
     Dates: start: 20210609
  10. OXYCODONE HYDROCHLORIDE [Concomitant]
     Active Substance: OXYCODONE HYDROCHLORIDE
     Dosage: 15 MILLIGRAM, BID
  11. OXYCODONE [Concomitant]
     Active Substance: OXYCODONE
     Dosage: 5MG/5ML. FREE 5-10ML QDS PRN
  12. OXYCODONE [Concomitant]
     Active Substance: OXYCODONE
     Dosage: 100 MILLIGRAM, QID, 5MG IN 5ML
     Route: 048
     Dates: start: 20210526
  13. OXYCODONE [Concomitant]
     Active Substance: OXYCODONE
     Dosage: 5 MILLIGRAM, QID, 5MG IN 5ML
     Route: 048
     Dates: start: 20210526
  14. ACETAMINOPHEN [Concomitant]
     Active Substance: ACETAMINOPHEN
     Dosage: 500 MILLIGRAM, PRN, 2 QDS PRN
  15. ACETAMINOPHEN [Concomitant]
     Active Substance: ACETAMINOPHEN
     Dosage: 1000 MILLIGRAM, QID
     Route: 048
     Dates: start: 20210526
  16. FLETCHERS PHOSPHATE ENEMA [Concomitant]
     Dosage: 1 MDU
  17. FLETCHERS PHOSPHATE ENEMA [Concomitant]
     Dosage: 1 DOSAGE FORM, QD, AT NIGHT
     Route: 054
     Dates: start: 20210528
  18. SENNA [Concomitant]
     Active Substance: SENNA LEAF\SENNOSIDES\SENNOSIDES A AND B
     Dosage: 7.5 MILLIGRAM, 1-2 ONCE AT NIGHT
  19. SENNA [Concomitant]
     Active Substance: SENNA LEAF\SENNOSIDES\SENNOSIDES A AND B
     Dosage: 15 MILLIGRAM, QD, AT NIGHT
     Route: 048
     Dates: start: 20210526, end: 20210608
  20. SENNA [Concomitant]
     Active Substance: SENNA LEAF\SENNOSIDES\SENNOSIDES A AND B
     Dosage: 15 MILLIGRAM, QD, AT NIGHT
     Route: 048
     Dates: start: 20210608
  21. DOCUSATE [Concomitant]
     Active Substance: DOCUSATE
     Dosage: 100 MILLIGRAM, QD
  22. DOCUSATE [Concomitant]
     Active Substance: DOCUSATE
     Dosage: 200 MILLIGRAM, QD, MORNING/BED
     Route: 048
     Dates: start: 20210526, end: 20210608
  23. HYDROXYUREA [Concomitant]
     Active Substance: HYDROXYUREA
     Dosage: 1000 MILLIGRAM, BID, MORNING/TEA
     Route: 048
     Dates: start: 20210527
  24. OXYCODONE [Concomitant]
     Active Substance: OXYCODONE
     Dosage: 2.5 MILLIGRAM, PRN, 10MG IN 1ML
     Route: 058
     Dates: start: 20210528, end: 20210616
  25. OXYCODONE [Concomitant]
     Active Substance: OXYCODONE
     Dosage: 5 MILLIGRAM, PRN, 10MG IN 1ML
     Route: 058
     Dates: start: 20210616
  26. ACETAMINOPHEN [Concomitant]
     Active Substance: ACETAMINOPHEN
     Dosage: 1000 MILLIGRAM, QID, 1G IN 100ML SOLUTION
     Route: 042
     Dates: start: 20210526
  27. LACRI-LUBE [Concomitant]
     Dosage: 1 DOSAGE FORM, QD, AT NIGHT
     Dates: start: 20210603, end: 20210603
  28. CALCIUM CARBONATE\SODIUM ALGINATE\SODIUM BICARBONATE [Concomitant]
     Active Substance: CALCIUM CARBONATE\SODIUM ALGINATE\SODIUM BICARBONATE
     Dosage: 10 MILLILITER
     Route: 048
     Dates: start: 20210528, end: 20210528
  29. PIPERACILLIN AND TAZOBACTAM [Concomitant]
     Active Substance: PIPERACILLIN SODIUM\TAZOBACTAM SODIUM
     Dosage: 1 DOSAGE FORM, Q8H, 4G/500MG
     Route: 042
     Dates: start: 20210526, end: 20210527
  30. ONDANSETRON [Concomitant]
     Active Substance: ONDANSETRON
     Dosage: 4 MILLIGRAM, Q8H, 4MG IN 2ML INJECTION
     Route: 042
     Dates: start: 20210527
  31. GLYCERIN [Concomitant]
     Active Substance: GLYCERIN
     Dosage: 4 GRAM, QD, AT NIGHT
     Route: 054
     Dates: start: 20210527
  32. OXYCODONE [Concomitant]
     Active Substance: OXYCODONE
     Dosage: 10 MILLIGRAM, BID
     Route: 048
     Dates: start: 20210527, end: 20210602
  33. OXYCODONE [Concomitant]
     Active Substance: OXYCODONE
     Dosage: 20 MILLIGRAM, BID
     Route: 048
     Dates: start: 20210602, end: 20210602
  34. OXYCODONE [Concomitant]
     Active Substance: OXYCODONE
     Dosage: 20 MILLIGRAM, BID
     Route: 048
     Dates: start: 20210526, end: 20210527
  35. OXYCODONE [Concomitant]
     Active Substance: OXYCODONE
     Dosage: 5 MILLIGRAM, BID
     Route: 048
     Dates: start: 20210527, end: 20210602
  36. SODIUM CHLORIDE [Concomitant]
     Active Substance: SODIUM CHLORIDE
     Dosage: 2.5 MILLILITER, QID
     Route: 055
     Dates: start: 20210608
  37. MIDAZOLAM [Concomitant]
     Active Substance: MIDAZOLAM
     Dosage: 5 MILLIGRAM, PRN, 5MG/ML
     Route: 058
     Dates: start: 20210616
  38. MIDAZOLAM [Concomitant]
     Active Substance: MIDAZOLAM
     Dosage: 2.5 MILLIGRAM, PRN, 5MG/ML
     Route: 058
     Dates: start: 20210528, end: 20210616
  39. LEVOMEPROMAZINE [Concomitant]
     Active Substance: LEVOMEPROMAZINE
     Dosage: 6.25 MILLIGRAM, PRN, 25MG/ML
     Route: 058
     Dates: start: 20210528
  40. HYPROMELLOSES [Concomitant]
     Active Substance: HYPROMELLOSES
     Dosage: UNK, PRN, BOTH EYES
     Dates: start: 20210615
  41. METOCLOPRAMIDE [Concomitant]
     Active Substance: METOCLOPRAMIDE
     Dosage: 10 MILLIGRAM, TID
     Route: 048
     Dates: start: 20210526, end: 20210527
  42. ONDANSETRON [Concomitant]
     Active Substance: ONDANSETRON
     Dosage: 4 MILLIGRAM, Q8H
     Route: 048
     Dates: start: 20210527
  43. GLYCOPYRRONIUM [Concomitant]
     Active Substance: GLYCOPYRRONIUM
     Dosage: 200 MICROGRAM, PRN
     Route: 058
     Dates: start: 20210528
  44. LANSOPRAZOLE [Concomitant]
     Active Substance: LANSOPRAZOLE
     Dosage: 15 MILLIGRAM, QD, TAKE IN THE MORNING
     Route: 048
     Dates: start: 20210529

REACTIONS (7)
  - Pulmonary embolism [Fatal]
  - Hypertension [Fatal]
  - Small cell lung cancer [Fatal]
  - Thrombocytosis [Fatal]
  - Decreased appetite [Unknown]
  - Lethargy [Unknown]
  - Chest pain [Unknown]

NARRATIVE: CASE EVENT DATE: 20210520
